FAERS Safety Report 13005845 (Version 3)
Quarter: 2017Q1

REPORT INFORMATION
  Report Type: Spontaneous
  Country: US (occurrence: US)
  Receive Date: 20161207
  Receipt Date: 20170109
  Transmission Date: 20170428
  Serious: Yes (Other)
  Sender: FDA-Public Use
  Company Number: US-PFIZER INC-2016555415

PATIENT
  Age: 56 Year
  Sex: Female

DRUGS (19)
  1. VALIUM [Concomitant]
     Active Substance: DIAZEPAM
     Dosage: UNK
  2. SOMA [Concomitant]
     Active Substance: CARISOPRODOL
     Dosage: UNK
  3. PANTOPRAZOLE [Concomitant]
     Active Substance: PANTOPRAZOLE SODIUM
     Dosage: 40 MG, 2X/DAY
     Route: 048
  4. NORCO [Concomitant]
     Active Substance: ACETAMINOPHEN\HYDROCODONE BITARTRATE
     Indication: PAIN
     Dosage: AS NEEDED, [HYDROCODONE BITARTRATE:10MG,PARACETAMOL:325MG] (1 TABLET EVERY 6 HOURS)
     Route: 048
     Dates: start: 20160726
  5. FLEXERIL [Concomitant]
     Active Substance: CYCLOBENZAPRINE HYDROCHLORIDE
     Dosage: UNK
  6. IBUPROFEN. [Concomitant]
     Active Substance: IBUPROFEN
     Dosage: UNK
  7. LYRICA [Suspect]
     Active Substance: PREGABALIN
     Indication: PAIN IN EXTREMITY
     Dosage: 75 MG, 3X/DAY
     Route: 048
     Dates: start: 20160304
  8. PENNSAID [Concomitant]
     Active Substance: DICLOFENAC SODIUM
     Indication: ARTHROPATHY
     Dosage: 2X/DAY, APPLY 2 PUMP TO THE AFFECTED KNEE(S)
     Route: 061
     Dates: start: 20160808
  9. HYDROCODONE [Concomitant]
     Active Substance: HYDROCODONE
     Dosage: UNK
  10. DARVOCET [Concomitant]
     Active Substance: ACETAMINOPHEN\PROPOXYPHENE HYDROCHLORIDE
     Dosage: UNK
  11. XANAX [Concomitant]
     Active Substance: ALPRAZOLAM
     Dosage: UNK
  12. PRAVASTATIN. [Concomitant]
     Active Substance: PRAVASTATIN
     Dosage: 40 MG, DAILY
     Route: 048
  13. PROMETHAZINE [Concomitant]
     Active Substance: PROMETHAZINE\PROMETHAZINE HYDROCHLORIDE
     Dosage: 25 MG, AS NEEDED, 2 TIMES EVERY DAY
     Route: 048
  14. TAMSULOSIN [Concomitant]
     Active Substance: TAMSULOSIN
     Dosage: 0.4 MG, DAILY, 1/2 HOUR FOLLOWING THE SAME MEAL EACH DAY
     Route: 048
  15. BUTRANS [Concomitant]
     Active Substance: BUPRENORPHINE
     Dosage: 7.5 UG, WEEKLY (EVERY 7 DAYS)
     Route: 062
     Dates: start: 20160726, end: 20161012
  16. PLAVIX [Concomitant]
     Active Substance: CLOPIDOGREL BISULFATE
     Dosage: UNK
  17. LINZESS [Concomitant]
     Active Substance: LINACLOTIDE
     Dosage: 145 UG, DAILY, (ON AN EMPTY STOMACH AT LEAST 30 MINUTES BEFORE 1ST MEAL OF THE DAY)
     Route: 048
  18. GABAPENTIN. [Concomitant]
     Active Substance: GABAPENTIN
     Dosage: UNK
  19. CLOPIDOGREL [Concomitant]
     Active Substance: CLOPIDOGREL BISULFATE
     Dosage: 75 MG, DAILY
     Route: 048

REACTIONS (16)
  - Pain in extremity [Unknown]
  - Insomnia [Unknown]
  - Erythema [Unknown]
  - Nephrolithiasis [Unknown]
  - Gait disturbance [Unknown]
  - Condition aggravated [Unknown]
  - Malaise [Unknown]
  - Cystitis [Unknown]
  - Asthenia [Unknown]
  - Peripheral swelling [Unknown]
  - Hyperaesthesia [Unknown]
  - Kidney infection [Unknown]
  - Anxiety [Unknown]
  - Joint swelling [Unknown]
  - Joint range of motion decreased [Unknown]
  - Depression [Unknown]
